FAERS Safety Report 19831455 (Version 4)
Quarter: 2022Q2

REPORT INFORMATION
  Report Type: Report from Study
  Country: CA (occurrence: CA)
  Receive Date: 20210915
  Receipt Date: 20220421
  Transmission Date: 20220721
  Serious: Yes (Hospitalization, Other)
  Sender: FDA-Public Use
  Company Number: CA-BRISTOL-MYERS SQUIBB COMPANY-BMS-2021-090710

PATIENT
  Age: 65 Year
  Sex: Male
  Weight: 100 kg

DRUGS (10)
  1. OPDIVO [Suspect]
     Active Substance: NIVOLUMAB
     Indication: Anal cancer
     Dosage: 480 MILLIGRAM, Q4WK
     Route: 042
     Dates: start: 20210610
  2. METFORMIN HYDROCHLORIDE\SAXAGLIPTIN [Concomitant]
     Active Substance: METFORMIN HYDROCHLORIDE\SAXAGLIPTIN
     Indication: Product used for unknown indication
     Route: 065
  3. GLICLAZIDE [Concomitant]
     Active Substance: GLICLAZIDE
     Indication: Product used for unknown indication
     Route: 065
  4. VITAMIN B12 [Concomitant]
     Active Substance: CYANOCOBALAMIN
     Indication: Product used for unknown indication
     Route: 065
  5. TRANDOLAPRIL [Concomitant]
     Active Substance: TRANDOLAPRIL
     Indication: Product used for unknown indication
     Route: 065
  6. NEXIUM I.V. [Concomitant]
     Active Substance: ESOMEPRAZOLE SODIUM
     Indication: Product used for unknown indication
     Route: 065
  7. LYRICA [Concomitant]
     Active Substance: PREGABALIN
     Indication: Product used for unknown indication
     Route: 065
  8. OLANZAPINE [Concomitant]
     Active Substance: OLANZAPINE
     Indication: Product used for unknown indication
     Route: 065
  9. FISH OIL [Concomitant]
     Active Substance: FISH OIL
     Indication: Product used for unknown indication
     Route: 065
  10. IRON [Concomitant]
     Active Substance: IRON
     Indication: Product used for unknown indication
     Route: 065

REACTIONS (3)
  - Malignant lymphoid neoplasm [Recovering/Resolving]
  - Brain neoplasm [Unknown]
  - Intentional product use issue [Unknown]

NARRATIVE: CASE EVENT DATE: 20211130
